FAERS Safety Report 4778845-8 (Version None)
Quarter: 2005Q3

REPORT INFORMATION
  Report Type: 
  Country: None (occurrence: None)
  Receive Date: 20050922
  Receipt Date: 20050906
  Transmission Date: 20060218
  Serious: Yes (Hospitalization)
  Sender: FDA-Public Use
  Company Number: 12337

PATIENT
  Age: 11 Year
  Sex: Female

DRUGS (5)
  1. METHOTREXATE [Suspect]
     Indication: LEUKAEMIA
     Dosage: 9600 MG IV
     Route: 042
     Dates: start: 20050808, end: 20050809
  2. GLUCOSE [Concomitant]
  3. ZOFRAN [Concomitant]
  4. KYTRIL [Concomitant]
  5. SOLU-MEDROL [Concomitant]

REACTIONS (5)
  - BLOOD CREATININE INCREASED [None]
  - BLOOD PRESSURE INCREASED [None]
  - CONVULSION [None]
  - DRUG CLEARANCE DECREASED [None]
  - DRUG LEVEL INCREASED [None]
